FAERS Safety Report 13511884 (Version 1)
Quarter: 2017Q2

REPORT INFORMATION
  Report Type: Spontaneous
  Country: IT (occurrence: IT)
  Receive Date: 20170504
  Receipt Date: 20170504
  Transmission Date: 20170830
  Serious: Yes (Other)
  Sender: FDA-Public Use
  Company Number: IT-JNJFOC-20170502296

PATIENT
  Age: 53 Year
  Sex: Female
  Weight: 59 kg

DRUGS (3)
  1. SIMPONI [Suspect]
     Active Substance: GOLIMUMAB
     Indication: SPONDYLITIS
     Route: 058
     Dates: start: 2015, end: 20170413
  2. METHOTREXATE. [Suspect]
     Active Substance: METHOTREXATE
     Indication: SPONDYLITIS
     Route: 058
     Dates: start: 2015, end: 20170413
  3. DIBASE [Concomitant]
     Active Substance: CHOLECALCIFEROL
     Route: 048

REACTIONS (2)
  - Pruritus [Recovering/Resolving]
  - Erythrodermic psoriasis [Recovering/Resolving]

NARRATIVE: CASE EVENT DATE: 20170413
